FAERS Safety Report 15243950 (Version 1)
Quarter: 2018Q3

REPORT INFORMATION
  Report Type: Spontaneous
  Country: US (occurrence: US)
  Receive Date: 20180806
  Receipt Date: 20180806
  Transmission Date: 20181010
  Serious: No
  Sender: FDA-Public Use
  Company Number: US-MISSION PHARMACAL COMPANY-2053284

PATIENT
  Age: 55 Year
  Sex: Female

DRUGS (1)
  1. UROCIT?K [Suspect]
     Active Substance: POTASSIUM CITRATE
     Indication: HYPOCITRATURIA
     Route: 048
     Dates: start: 20180630, end: 20180725

REACTIONS (2)
  - Abdominal discomfort [Unknown]
  - Vomiting [Unknown]
